FAERS Safety Report 9280609 (Version 1)
Quarter: 2013Q2

REPORT INFORMATION
  Report Type: Spontaneous
  Country: US (occurrence: None)
  Receive Date: 20130507
  Receipt Date: 20130507
  Transmission Date: 20140414
  Serious: No
  Sender: FDA-Public Use
  Company Number: None

PATIENT
  Sex: Female

DRUGS (1)
  1. XELODA [Suspect]
     Dosage: 7 DAYS ON, 7 OFF
     Route: 048
     Dates: start: 20130204, end: 20130410

REACTIONS (3)
  - Hiatus hernia [None]
  - Flatulence [None]
  - Oesophageal pain [None]
